FAERS Safety Report 14298823 (Version 2)
Quarter: 2018Q1

REPORT INFORMATION
  Report Type: Spontaneous
  Country: BE (occurrence: BE)
  Receive Date: 20171218
  Receipt Date: 20180306
  Transmission Date: 20180509
  Serious: Yes (Other)
  Sender: FDA-Public Use
  Company Number: BE-BIOGEN-2017BI00497018

PATIENT
  Age: 54 Year
  Sex: Female

DRUGS (12)
  1. LYRICA [Concomitant]
     Active Substance: PREGABALIN
     Indication: PRODUCT USED FOR UNKNOWN INDICATION
     Route: 065
  2. TECFIDERA [Suspect]
     Active Substance: DIMETHYL FUMARATE
     Indication: MULTIPLE SCLEROSIS
     Dosage: MAINTENANCE DOSE
     Route: 048
  3. DAFALGAN [Concomitant]
     Active Substance: ACETAMINOPHEN
     Indication: PRODUCT USED FOR UNKNOWN INDICATION
     Route: 065
  4. GILENYA [Concomitant]
     Active Substance: FINGOLIMOD HYDROCHLORIDE
     Route: 065
  5. MEPHENON [Concomitant]
     Active Substance: METHADONE HYDROCHLORIDE
     Indication: PRODUCT USED FOR UNKNOWN INDICATION
     Route: 065
  6. ALPRAZOLAM. [Concomitant]
     Active Substance: ALPRAZOLAM
     Indication: DEPRESSION
     Route: 065
     Dates: start: 20140901
  7. TEGRETOL [Concomitant]
     Active Substance: CARBAMAZEPINE
     Indication: MYOCLONUS
     Route: 065
     Dates: start: 20140901
  8. GILENYA [Concomitant]
     Active Substance: FINGOLIMOD HYDROCHLORIDE
     Indication: MULTIPLE SCLEROSIS
     Route: 065
     Dates: start: 20140304, end: 20140323
  9. REDOMEX [Concomitant]
     Active Substance: AMITRIPTYLINE HYDROCHLORIDE
     Indication: PRODUCT USED FOR UNKNOWN INDICATION
     Route: 065
  10. STILNOCT [Concomitant]
     Active Substance: ZOLPIDEM TARTRATE
     Indication: PRODUCT USED FOR UNKNOWN INDICATION
     Route: 065
  11. PSEUDOEPHEDRINE [Concomitant]
     Active Substance: PSEUDOEPHEDRINE
     Indication: PRODUCT USED FOR UNKNOWN INDICATION
     Route: 065
  12. IBUPROFEN. [Concomitant]
     Active Substance: IBUPROFEN
     Indication: PRODUCT USED FOR UNKNOWN INDICATION
     Route: 065

REACTIONS (11)
  - Fatigue [Recovered/Resolved]
  - Musculoskeletal pain [Not Recovered/Not Resolved]
  - Rash [Unknown]
  - Urticaria [Unknown]
  - Hot flush [Unknown]
  - Musculoskeletal disorder [Unknown]
  - Eczema [Unknown]
  - Lip swelling [Unknown]
  - Ear infection [Unknown]
  - Anaphylactic reaction [Recovered/Resolved]
  - Allergic oedema [Unknown]

NARRATIVE: CASE EVENT DATE: 20140901
